FAERS Safety Report 12879164 (Version 1)
Quarter: 2016Q4

REPORT INFORMATION
  Report Type: Spontaneous
  Country: US (occurrence: US)
  Receive Date: 20161025
  Receipt Date: 20161025
  Transmission Date: 20170207
  Serious: No
  Sender: FDA-Public Use
  Company Number: US-ASTRAZENECA-2016SF11216

PATIENT

DRUGS (2)
  1. LIPITOR [Concomitant]
     Active Substance: ATORVASTATIN CALCIUM
     Dosage: UNKNOWN
     Route: 065
  2. BRILINTA [Suspect]
     Active Substance: TICAGRELOR
     Dosage: UNKNOWN
     Route: 048

REACTIONS (1)
  - Hepatitis [Unknown]
